FAERS Safety Report 10158170 (Version 2)
Quarter: 2014Q2

REPORT INFORMATION
  Report Type: Report from Study
  Country: US (occurrence: US)
  Receive Date: 20140507
  Receipt Date: 20140520
  Transmission Date: 20141212
  Serious: Yes (Hospitalization)
  Sender: FDA-Public Use
  Company Number: US-ACTELION-A-NJ2014-98265

PATIENT
  Age: 75 Year
  Sex: Female

DRUGS (8)
  1. MACITENTAN [Suspect]
     Indication: PULMONARY ARTERIAL HYPERTENSION
     Dosage: 10 MG, QD
     Route: 048
     Dates: start: 20140201
  2. NEXIUM [Concomitant]
  3. SYNTHROID [Concomitant]
  4. VYTORIN [Concomitant]
  5. SPIRIVA [Concomitant]
  6. GEMFIBROZIL [Concomitant]
  7. LOSARTAN [Concomitant]
  8. SYMBICORT [Concomitant]

REACTIONS (5)
  - Hip fracture [Recovering/Resolving]
  - Surgery [Recovering/Resolving]
  - Fall [Recovering/Resolving]
  - Pain [Recovering/Resolving]
  - Drug dose omission [Recovering/Resolving]
